FAERS Safety Report 6905032-7 (Version None)
Quarter: 2010Q3

REPORT INFORMATION
  Report Type: 
  Country: None (occurrence: None)
  Receive Date: 20100804
  Receipt Date: 20090831
  Transmission Date: 20110219
  Serious: No
  Sender: FDA-Public Use
  Company Number: US-PFIZER INC-2009249440

PATIENT
  Sex: Female
  Weight: 90.7 kg

DRUGS (6)
  1. LYRICA [Suspect]
     Indication: NEURALGIA
     Dosage: 75 MG, 3X/DAY
     Route: 048
     Dates: start: 20090425
  2. NABUMETONE [Concomitant]
     Indication: SWELLING
     Dosage: TWO TIMES DAILY
     Route: 048
     Dates: start: 20090424
  3. NABUMETONE [Concomitant]
     Indication: INFLAMMATION
  4. SYNTHROID [Concomitant]
     Indication: WEIGHT DECREASED
     Dosage: UNK
     Route: 048
  5. TOPROL-XL [Concomitant]
     Dosage: UNK
     Route: 048
  6. DIOVAN HCT [Concomitant]
     Indication: HYPERTENSION
     Dosage: UNK
     Route: 048

REACTIONS (1)
  - WITHDRAWAL SYNDROME [None]
